FAERS Safety Report 6659786-8 (Version None)
Quarter: 2010Q1

REPORT INFORMATION
  Report Type: 
  Country: None (occurrence: None)
  Receive Date: 20100325
  Receipt Date: 20100316
  Transmission Date: 20100710
  Serious: Yes (Death)
  Sender: FDA-Public Use
  Company Number: 536623

PATIENT
  Age: 33 Year
  Sex: Male

DRUGS (5)
  1. (VINCRISTINE SULFATE) [Suspect]
     Indication: CASTLEMAN'S DISEASE
     Dosage: 1.4 MG/M2, INTRAVENOUS DRIP
     Route: 041
  2. DEXAMETHASONE [Suspect]
     Indication: CASTLEMAN'S DISEASE
     Dosage: 40 MG, INTRAVENOUS DRIP
     Route: 041
  3. CYCLOPHOSPHAMIDE [Suspect]
     Indication: CASTLEMAN'S DISEASE
     Dosage: 800 MG/M2
  4. PREDNISOLONE [Suspect]
     Indication: CASTLEMAN'S DISEASE
     Dosage: 1 MG,KG
  5. ANTIBIOTICS [Concomitant]

REACTIONS (4)
  - MARROW HYPERPLASIA [None]
  - MULTI-ORGAN FAILURE [None]
  - RENAL FAILURE [None]
  - TUMOUR LYSIS SYNDROME [None]
